FAERS Safety Report 7594463 (Version 4)
Quarter: 2013Q4

REPORT INFORMATION
  Report Type: Spontaneous
  Country: US (occurrence: US)
  Receive Date: 20100920
  Receipt Date: 20131126
  Transmission Date: 20140711
  Serious: Yes (Hospitalization)
  Sender: FDA-Public Use
  Company Number: US-BAYER-201033959NA

PATIENT
  Age: 22 Year
  Sex: Female
  Weight: 63.49 kg

DRUGS (9)
  1. YAZ [Suspect]
     Indication: PREMENSTRUAL DYSPHORIC DISORDER
     Dosage: UNK
     Dates: start: 2004, end: 2010
  2. YASMIN [Suspect]
     Indication: PRODUCT USED FOR UNKNOWN INDICATION
     Dosage: UNK
  3. IBUPROFEN [Concomitant]
  4. ANTIBIOTICS [Concomitant]
  5. ACETIC ACID [Concomitant]
     Dosage: 2 %, UNK
     Dates: start: 20070811
  6. AMOXICILLIN [Concomitant]
     Dosage: 500 MG, UNK
     Route: 048
     Dates: start: 20070811
  7. PRILOSEC [Concomitant]
     Dosage: UNK
     Route: 048
     Dates: start: 20071016
  8. ADVIL [Concomitant]
     Dosage: UNK
     Route: 048
     Dates: start: 20071023
  9. LORTAB [Concomitant]
     Dosage: 7.5 UNK, UNK
     Route: 048
     Dates: start: 20071023

REACTIONS (5)
  - Cholecystectomy [None]
  - Abdominal pain upper [None]
  - Abdominal pain lower [None]
  - Cholecystitis chronic [None]
  - Biliary dyskinesia [None]
